FAERS Safety Report 19878557 (Version 1)
Quarter: 2021Q3

REPORT INFORMATION
  Report Type: Spontaneous
  Country: US (occurrence: US)
  Receive Date: 20210924
  Receipt Date: 20210924
  Transmission Date: 20211014
  Serious: No
  Sender: FDA-Public Use
  Company Number: US-CELLTRION INC.-2021US003735

PATIENT

DRUGS (7)
  1. INFLIXIMAB (UNKNOWN) [Suspect]
     Active Substance: INFLIXIMAB
     Dosage: 5 MG/KG, VIA INTRAVENOUS INFUSION
     Route: 042
  2. PREDNISONE. [Suspect]
     Active Substance: PREDNISONE
     Dosage: 6 MONTHS POST INITIATION (10.4 MG TO 6.1 MG, P=0.001)
  3. PREDNISONE. [Suspect]
     Active Substance: PREDNISONE
     Dosage: 12 MONTHS POST INITIATION (7.3 MG TO 7.3 MG, P=0.002)
  4. INFLIXIMAB (UNKNOWN) [Suspect]
     Active Substance: INFLIXIMAB
     Dosage: 10 MG/KG, VIA INTRAVENOUS INFUSION
     Route: 042
  5. INFLIXIMAB (UNKNOWN) [Suspect]
     Active Substance: INFLIXIMAB
     Indication: CARDIAC SARCOIDOSIS
     Dosage: 3 MG/KG, VIA INTRAVENOUS INFUSION
     Route: 042
  6. INFLIXIMAB (UNKNOWN) [Suspect]
     Active Substance: INFLIXIMAB
     Dosage: 6 MG/KG, VIA INTRAVENOUS INFUSION
     Route: 042
  7. PREDNISONE. [Suspect]
     Active Substance: PREDNISONE
     Dosage: TNF ALPHA INHIBITOR INITIATION (21.7 MG TO 17.5 MG)

REACTIONS (2)
  - Off label use [Unknown]
  - Drug effective for unapproved indication [Unknown]
